FAERS Safety Report 25003422 (Version 1)
Quarter: 2025Q1

REPORT INFORMATION
  Report Type: Other
  Country: GR (occurrence: GR)
  Receive Date: 20250224
  Receipt Date: 20250224
  Transmission Date: 20250409
  Serious: Yes (Hospitalization, Congenital Anomaly, Other)
  Sender: ANI
  Company Number: GR-ANIPHARMA-015692

PATIENT
  Age: 17 Month
  Sex: Female

DRUGS (1)
  1. VALPROIC ACID [Suspect]
     Active Substance: VALPROIC ACID
     Indication: Product used for unknown indication
     Route: 064

REACTIONS (12)
  - Hypotonia neonatal [Unknown]
  - Congenital hypothyroidism [Unknown]
  - Syndactyly [Unknown]
  - Choroidal coloboma [Unknown]
  - Deafness congenital [Unknown]
  - Dysmorphism [Unknown]
  - Motor developmental delay [Unknown]
  - Neurodevelopmental delay [Unknown]
  - Congenital astigmatism [Unknown]
  - Foetal exposure during pregnancy [Unknown]
  - Foetal anticonvulsant syndrome [Unknown]
  - Hypertonia neonatal [Unknown]
